FAERS Safety Report 9220931 (Version 2)
Quarter: 2014Q1

REPORT INFORMATION
  Report Type: Spontaneous
  Country: US (occurrence: US)
  Receive Date: 20130409
  Receipt Date: 20140324
  Transmission Date: 20141002
  Serious: Yes (Death, Hospitalization)
  Sender: FDA-Public Use
  Company Number: US-B.I. PHARMACEUTICALS,INC./RIDGEFIELD-2013-BI-09610BP

PATIENT
  Sex: Male
  Weight: 145.15 kg

DRUGS (3)
  1. PRADAXA [Suspect]
     Indication: ATRIAL FIBRILLATION
     Route: 065
     Dates: start: 20110309, end: 20110417
  2. TRIAMTERENE/HCTZ [Concomitant]
     Route: 065
     Dates: start: 1997, end: 2011
  3. AMLODIPINE/BENAZEPRIL [Concomitant]
     Route: 065
     Dates: start: 1997, end: 2011

REACTIONS (2)
  - Death [Fatal]
  - Gastrointestinal haemorrhage [Unknown]
